FAERS Safety Report 24982006 (Version 2)
Quarter: 2025Q1

REPORT INFORMATION
  Report Type: Spontaneous
  Country: CA (occurrence: CA)
  Receive Date: 20250218
  Receipt Date: 20250326
  Transmission Date: 20250408
  Serious: Yes (Hospitalization)
  Sender: SANDOZ
  Company Number: CA-SANDOZ-SDZ2024CA056744

PATIENT
  Age: 67 Year
  Sex: Male

DRUGS (17)
  1. APIXABAN [Suspect]
     Active Substance: APIXABAN
     Indication: Product used for unknown indication
     Dosage: 5.0 MG, BID
     Route: 048
  2. LENALIDOMIDE [Suspect]
     Active Substance: LENALIDOMIDE
     Indication: Plasma cell myeloma
     Dosage: 15.0 MG, QD
     Route: 048
  3. LENALIDOMIDE [Suspect]
     Active Substance: LENALIDOMIDE
     Dosage: 15.0 MG, QD
     Route: 048
  4. LENALIDOMIDE [Suspect]
     Active Substance: LENALIDOMIDE
     Dosage: 25 MG, QD
     Route: 048
  5. DEXAMETHASONE [Suspect]
     Active Substance: DEXAMETHASONE
     Indication: Product used for unknown indication
     Route: 065
  6. METOPROLOL [Suspect]
     Active Substance: METOPROLOL
     Indication: Product used for unknown indication
     Dosage: 50.0 MG, BID
     Route: 048
  7. ACYCLOVIR [Concomitant]
     Active Substance: ACYCLOVIR
     Indication: Product used for unknown indication
     Dosage: 400.0 MG, BID
     Route: 048
  8. CLEARLAX [Concomitant]
     Active Substance: POLYETHYLENE GLYCOL 3350
     Indication: Constipation
     Dosage: 17.0 G, QD POWDER FOR SOLUTION ORAL
     Route: 048
  9. DOCUSATE [Concomitant]
     Active Substance: DOCUSATE
     Indication: Product used for unknown indication
     Dosage: 2.0 DF, QD
     Route: 048
  10. FLECAINIDE [Concomitant]
     Active Substance: FLECAINIDE
     Indication: Product used for unknown indication
     Dosage: 1.5 DF, QD
     Route: 048
  11. FLECAINIDE [Concomitant]
     Active Substance: FLECAINIDE
     Dosage: 1.5 DF, Q12H
     Route: 048
  12. IBUPROFEN [Concomitant]
     Active Substance: IBUPROFEN
     Indication: Pain
     Route: 065
  13. LANSOPRAZOLE [Concomitant]
     Active Substance: LANSOPRAZOLE
     Indication: Dyspepsia
     Dosage: 1.0 DF, QD
     Route: 048
  14. METHYLPREDNISOLONE [Concomitant]
     Active Substance: METHYLPREDNISOLONE
     Indication: Product used for unknown indication
     Route: 065
  15. TYLENOL EXTRA STRENGTH [Concomitant]
     Active Substance: ACETAMINOPHEN
     Indication: Pain
     Dosage: 2.0 DF, BID
     Route: 048
  16. VELCADE [Concomitant]
     Active Substance: BORTEZOMIB
     Indication: Plasma cell myeloma
     Route: 042
  17. VITAMIN D3 [Concomitant]
     Active Substance: CHOLECALCIFEROL
     Indication: Product used for unknown indication
     Dosage: 2.0 DF, QD
     Route: 048

REACTIONS (5)
  - Transfusion [Unknown]
  - Hiccups [Unknown]
  - Fatigue [Unknown]
  - Therapy non-responder [Unknown]
  - Off label use [Unknown]
